FAERS Safety Report 7014647-X (Version None)
Quarter: 2010Q3

REPORT INFORMATION
  Report Type: 
  Country: None (occurrence: None)
  Receive Date: 20100927
  Receipt Date: 20100916
  Transmission Date: 20110219
  Serious: Yes (Hospitalization)
  Sender: FDA-Public Use
  Company Number: DE-ROCHE-727955

PATIENT
  Sex: Male
  Weight: 78 kg

DRUGS (5)
  1. BEVACIZUMAB [Suspect]
     Dosage: FORM:INFUSION
     Route: 042
     Dates: start: 20100427
  2. OXALIPLATIN [Suspect]
     Dosage: FORM:INFUSION
     Route: 042
     Dates: start: 20100427
  3. FLUOROURACIL [Suspect]
     Dosage: FORM:INFUSION
     Route: 042
     Dates: start: 20100427
  4. FOLINIC ACID [Suspect]
     Dosage: FORM:INFUSION
     Route: 042
     Dates: start: 20100427
  5. COAPROVEL [Concomitant]

REACTIONS (1)
  - GENERAL PHYSICAL HEALTH DETERIORATION [None]
